FAERS Safety Report 7353759-8 (Version None)
Quarter: 2011Q1

REPORT INFORMATION
  Report Type: 
  Country: None (occurrence: None)
  Receive Date: 20110315
  Receipt Date: 20110304
  Transmission Date: 20110831
  Serious: Yes (Hospitalization, Disabling, Other)
  Sender: FDA-Public Use
  Company Number: US-ELI_LILLY_AND_COMPANY-US201007000398

PATIENT
  Sex: Female

DRUGS (12)
  1. CELEXA [Concomitant]
     Dosage: UNK, UNKNOWN
     Route: 065
  2. ASPIRIN [Concomitant]
     Dosage: UNK, UNKNOWN
     Route: 065
  3. COLACE [Concomitant]
     Dosage: UNK, UNKNOWN
     Route: 065
  4. TRAZODONE [Concomitant]
     Dosage: UNK, UNKNOWN
     Route: 065
  5. PREDNISONE [Concomitant]
     Dosage: UNK, UNKNOWN
     Route: 065
  6. FORTEO [Suspect]
     Indication: OSTEOPOROSIS
     Dosage: 20 UG, DAILY (1/D)
     Route: 065
     Dates: start: 20100503
  7. TYLENOL (CAPLET) [Concomitant]
     Dosage: UNK, UNKNOWN
     Route: 065
  8. FLUOCINOLONE ACETONIDE [Concomitant]
     Dosage: UNK, UNKNOWN
     Route: 065
  9. ATIVAN [Concomitant]
     Dosage: UNK, UNKNOWN
     Route: 065
  10. CLARITIN [Concomitant]
     Dosage: UNK, UNKNOWN
     Route: 065
  11. CALCIUM CARBONATE [Concomitant]
     Dosage: UNK, UNKNOWN
     Route: 065
  12. MULTI-VITAMIN [Concomitant]
     Dosage: UNK, UNKNOWN
     Route: 065

REACTIONS (24)
  - HYPOAESTHESIA [None]
  - HEARING IMPAIRED [None]
  - EMOTIONAL DISTRESS [None]
  - DISABILITY [None]
  - ECZEMA [None]
  - INSOMNIA [None]
  - CONFUSIONAL STATE [None]
  - FALL [None]
  - ABDOMINAL DISTENSION [None]
  - WOUND SECRETION [None]
  - COMPRESSION FRACTURE [None]
  - BALANCE DISORDER [None]
  - CATARACT [None]
  - GENERAL PHYSICAL HEALTH DETERIORATION [None]
  - ARTHRITIS [None]
  - EAR DISORDER [None]
  - BACK PAIN [None]
  - ANXIETY [None]
  - WOUND CLOSURE [None]
  - ERYTHEMA [None]
  - HEAD INJURY [None]
  - FATIGUE [None]
  - PRESYNCOPE [None]
  - DIZZINESS [None]
